FAERS Safety Report 14974959 (Version 1)
Quarter: 2018Q2

REPORT INFORMATION
  Report Type: Spontaneous
  Country: NL (occurrence: NL)
  Receive Date: 20180605
  Receipt Date: 20180605
  Transmission Date: 20180711
  Serious: Yes (Other)
  Sender: FDA-Public Use
  Company Number: NL-JNJFOC-20180539662

PATIENT
  Age: 46 Year
  Sex: Male
  Weight: 45.36 kg

DRUGS (3)
  1. STELARA [Suspect]
     Active Substance: USTEKINUMAB
     Indication: SPONDYLOARTHROPATHY
     Route: 058
     Dates: start: 20150701
  2. STELARA [Suspect]
     Active Substance: USTEKINUMAB
     Indication: PSORIASIS
     Route: 058
     Dates: start: 20150701
  3. ETORICOXIB [Concomitant]
     Active Substance: ETORICOXIB
     Indication: PAIN
     Route: 048

REACTIONS (3)
  - Off label use [Unknown]
  - Product use issue [Unknown]
  - Thrombosis [Unknown]

NARRATIVE: CASE EVENT DATE: 20150701
